FAERS Safety Report 6192420-2 (Version None)
Quarter: 2009Q2

REPORT INFORMATION
  Report Type: 
  Country: None (occurrence: None)
  Receive Date: 20090513
  Receipt Date: 20090513
  Transmission Date: 20091009
  Serious: No
  Sender: FDA-Public Use
  Company Number: None

PATIENT
  Age: 67 Year
  Sex: Female

DRUGS (1)
  1. BENDAMUSTINE INJ CEPHALON [Suspect]
     Indication: CHRONIC LYMPHOCYTIC LEUKAEMIA
     Dosage: 168 MG DI D2 Q3W IV 110 MG D1 D2 Q3W IV
     Route: 042
     Dates: start: 20081027

REACTIONS (1)
  - BLOOD ALKALINE PHOSPHATASE INCREASED [None]
